FAERS Safety Report 21528874 (Version 1)
Quarter: 2022Q4

REPORT INFORMATION
  Report Type: Spontaneous
  Country: US (occurrence: US)
  Receive Date: 20221031
  Receipt Date: 20221031
  Transmission Date: 20230112
  Serious: No
  Sender: FDA-Public Use
  Company Number: US-BEH-2022151116

PATIENT
  Age: 42 Year
  Sex: Male

DRUGS (28)
  1. HIZENTRA [Suspect]
     Active Substance: HUMAN IMMUNOGLOBULIN G
     Indication: Immunodeficiency
     Dosage: UNK GRAM
     Route: 058
     Dates: start: 20210122
  2. HIZENTRA [Suspect]
     Active Substance: HUMAN IMMUNOGLOBULIN G
     Dosage: 7 GRAM, QW
     Route: 058
  3. HIZENTRA [Suspect]
     Active Substance: HUMAN IMMUNOGLOBULIN G
     Dosage: 7 GRAM, QW
     Route: 058
  4. AMITRIPTYLINE [Concomitant]
     Active Substance: AMITRIPTYLINE
  5. AZELASTINE [Concomitant]
     Active Substance: AZELASTINE
  6. CLONAZEPAM [Concomitant]
     Active Substance: CLONAZEPAM
  7. EPINEPHRINE [Concomitant]
     Active Substance: EPINEPHRINE
  8. HYDROCHLOROTHIAZIDE [Concomitant]
     Active Substance: HYDROCHLOROTHIAZIDE
  9. HYDROXYZINE HYDROCHLORIDE [Concomitant]
     Active Substance: HYDROXYZINE HYDROCHLORIDE
  10. HYDROXYZINE PAMOATE [Concomitant]
     Active Substance: HYDROXYZINE PAMOATE
  11. IPRATROPIUM [Concomitant]
     Active Substance: IPRATROPIUM
  12. LINZESS [Concomitant]
     Active Substance: LINACLOTIDE
  13. LINZESS [Concomitant]
     Active Substance: LINACLOTIDE
  14. LOSARTAN POTASSIUM [Concomitant]
     Active Substance: LOSARTAN POTASSIUM
  15. HYDROCHLOROTHIAZIDE\LOSARTAN POTASSIUM [Concomitant]
     Active Substance: HYDROCHLOROTHIAZIDE\LOSARTAN POTASSIUM
  16. PRUCALOPRIDE [Concomitant]
     Active Substance: PRUCALOPRIDE
  17. RIMEGEPANT [Concomitant]
     Active Substance: RIMEGEPANT
  18. OXYCODONE/APAP [Concomitant]
     Active Substance: ACETAMINOPHEN\OXYCODONE HYDROCHLORIDE
  19. PIMECROLIMUS [Concomitant]
     Active Substance: PIMECROLIMUS
  20. REXULTI [Concomitant]
     Active Substance: BREXPIPRAZOLE
  21. REXULTI [Concomitant]
     Active Substance: BREXPIPRAZOLE
  22. RIZATRIPTAN [Concomitant]
     Active Substance: RIZATRIPTAN
  23. TESTOSTERONE CYPIONATE [Concomitant]
     Active Substance: TESTOSTERONE CYPIONATE
  24. TIZANIDINE [Concomitant]
     Active Substance: TIZANIDINE
  25. TRAZODONE [Concomitant]
     Active Substance: TRAZODONE HYDROCHLORIDE
  26. PLECANATIDE [Concomitant]
     Active Substance: PLECANATIDE
  27. ZOLPIDEM [Concomitant]
     Active Substance: ZOLPIDEM TARTRATE
  28. ZUBSOLV [Concomitant]
     Active Substance: BUPRENORPHINE HYDROCHLORIDE\NALOXONE HYDROCHLORIDE

REACTIONS (2)
  - Nasopharyngitis [Not Recovered/Not Resolved]
  - Sinusitis [Not Recovered/Not Resolved]

NARRATIVE: CASE EVENT DATE: 20220912
